FAERS Safety Report 17342672 (Version 1)
Quarter: 2020Q1

REPORT INFORMATION
  Report Type: Spontaneous
  Country: CN (occurrence: CN)
  Receive Date: 20200129
  Receipt Date: 20200129
  Transmission Date: 20200409
  Serious: Yes (Other)
  Sender: FDA-Public Use
  Company Number: CN-ASTRAZENECA-2020SE12926

PATIENT
  Age: 33 Year
  Sex: Male
  Weight: 60 kg

DRUGS (3)
  1. PULMICORT RESPULES [Suspect]
     Active Substance: BUDESONIDE
     Indication: LARYNGEAL DISCOMFORT
     Route: 055
     Dates: start: 20191214, end: 20191216
  2. PULMICORT RESPULES [Suspect]
     Active Substance: BUDESONIDE
     Indication: PHARYNGITIS
     Route: 055
     Dates: start: 20191214, end: 20191216
  3. SODIUM CHLORIDE. [Concomitant]
     Active Substance: SODIUM CHLORIDE
     Dates: start: 20191214, end: 20191216

REACTIONS (2)
  - Dizziness [Recovering/Resolving]
  - Quadriplegia [Recovering/Resolving]

NARRATIVE: CASE EVENT DATE: 20191216
